FAERS Safety Report 12133351 (Version 2)
Quarter: 2016Q2

REPORT INFORMATION
  Report Type: Spontaneous
  Country: US (occurrence: US)
  Receive Date: 20160301
  Receipt Date: 20160425
  Transmission Date: 20160815
  Serious: Yes (Hospitalization)
  Sender: FDA-Public Use
  Company Number: US-ROCHE-1717325

PATIENT
  Age: 49 Year
  Sex: Female
  Weight: 134.84 kg

DRUGS (3)
  1. DEMEROL [Concomitant]
     Active Substance: MEPERIDINE HYDROCHLORIDE
  2. HERCEPTIN [Suspect]
     Active Substance: TRASTUZUMAB
     Indication: BREAST CANCER
     Route: 042
     Dates: start: 20160120, end: 20160120
  3. SOLU-MEDROL [Concomitant]
     Active Substance: METHYLPREDNISOLONE SODIUM SUCCINATE

REACTIONS (4)
  - Chills [Recovered/Resolved]
  - Hypertension [Unknown]
  - Tremor [Recovered/Resolved]
  - Oral mucosal blistering [Unknown]

NARRATIVE: CASE EVENT DATE: 20160120
